FAERS Safety Report 12235891 (Version 1)
Quarter: 2016Q2

REPORT INFORMATION
  Report Type: Report from Study
  Country: US (occurrence: US)
  Receive Date: 20160404
  Receipt Date: 20160404
  Transmission Date: 20160815
  Serious: Yes (Other)
  Sender: FDA-Public Use
  Company Number: US-BIOGEN-2015BI134867

PATIENT
  Age: 44 Year
  Sex: Male

DRUGS (1)
  1. TYSABRI [Suspect]
     Active Substance: NATALIZUMAB
     Indication: MULTIPLE SCLEROSIS
     Dosage: INFUSED OVER 1 HOUR
     Route: 042
     Dates: start: 20070504

REACTIONS (37)
  - Dysgraphia [Recovered/Resolved]
  - Cognitive disorder [Recovered/Resolved]
  - General symptom [Unknown]
  - Nasal pruritus [Unknown]
  - Visual acuity reduced [Not Recovered/Not Resolved]
  - Stress [Recovered/Resolved]
  - Frustration tolerance decreased [Unknown]
  - Tremor [Recovered/Resolved]
  - Drug ineffective [Recovered/Resolved]
  - Dysarthria [Unknown]
  - Depressed mood [Unknown]
  - Multiple sclerosis [Unknown]
  - Dyspnoea [Recovered/Resolved]
  - Burning sensation [Not Recovered/Not Resolved]
  - Anxiety [Not Recovered/Not Resolved]
  - Musculoskeletal stiffness [Unknown]
  - Motor dysfunction [Unknown]
  - Urticaria [Recovered/Resolved]
  - Rash [Recovered/Resolved]
  - Secondary progressive multiple sclerosis [Recovered/Resolved]
  - Formication [Not Recovered/Not Resolved]
  - Multiple sclerosis relapse [Recovered/Resolved]
  - Prescribed underdose [Recovered/Resolved]
  - Blister [Not Recovered/Not Resolved]
  - Rash papular [Not Recovered/Not Resolved]
  - Mobility decreased [Recovered/Resolved]
  - Foreign body sensation in eyes [Recovered/Resolved]
  - Eyelid rash [Recovered/Resolved]
  - Dry skin [Not Recovered/Not Resolved]
  - Nasal discomfort [Unknown]
  - Temperature intolerance [Unknown]
  - Pruritus [Not Recovered/Not Resolved]
  - Coordination abnormal [Recovered/Resolved]
  - Muscle spasticity [Unknown]
  - Visual impairment [Recovered/Resolved]
  - Fear [Unknown]
  - Hypersensitivity [Recovered/Resolved]

NARRATIVE: CASE EVENT DATE: 201508
